FAERS Safety Report 13866013 (Version 1)
Quarter: 2017Q3

REPORT INFORMATION
  Report Type: Spontaneous
  Country: US (occurrence: US)
  Receive Date: 20170814
  Receipt Date: 20170814
  Transmission Date: 20171127
  Serious: No
  Sender: FDA-Public Use
  Company Number: US-ROCHE-1865144

PATIENT
  Sex: Female
  Weight: 131.66 kg

DRUGS (1)
  1. ACTEMRA [Suspect]
     Active Substance: TOCILIZUMAB
     Indication: RHEUMATOID ARTHRITIS
     Route: 065

REACTIONS (3)
  - Weight bearing difficulty [Not Recovered/Not Resolved]
  - Pain [Not Recovered/Not Resolved]
  - Palindromic rheumatism [Recovered/Resolved]
